FAERS Safety Report 7808011-0 (Version None)
Quarter: 2011Q4

REPORT INFORMATION
  Report Type: 
  Country: None (occurrence: None)
  Receive Date: 20111011
  Receipt Date: 20111011
  Transmission Date: 20120403
  Serious: Yes (Death)
  Sender: FDA-Public Use
  Company Number: None

PATIENT
  Sex: Male
  Weight: 61.234 kg

DRUGS (7)
  1. TEMSIROLIMUS [Suspect]
     Indication: BLADDER CANCER
     Dosage: 25 MG
     Route: 042
     Dates: start: 20110920, end: 20110920
  2. TEMSIROLIMUS [Suspect]
     Indication: METASTASES TO BONE
     Dosage: 25 MG
     Route: 042
     Dates: start: 20110920, end: 20110920
  3. TEMSIROLIMUS [Suspect]
     Indication: METASTASES TO LYMPH NODES
     Dosage: 25 MG
     Route: 042
     Dates: start: 20110920, end: 20110920
  4. VINORELBINE [Concomitant]
     Indication: BLADDER CANCER
     Dosage: 25MG/M2
     Route: 042
     Dates: start: 20110920, end: 20110920
  5. TOPRAL XL [Concomitant]
     Indication: METASTASES TO BONE
  6. IMODIUM [Concomitant]
     Route: 048
  7. COUMADIN [Concomitant]
     Indication: METASTASES TO LYMPH NODES
     Route: 048

REACTIONS (1)
  - HOSPICE CARE [None]
